FAERS Safety Report 9929494 (Version 2)
Quarter: 2014Q1

REPORT INFORMATION
  Report Type: Spontaneous
  Country: IT (occurrence: IT)
  Receive Date: 20140227
  Receipt Date: 20140310
  Transmission Date: 20141002
  Serious: Yes (Hospitalization)
  Sender: FDA-Public Use
  Company Number: PHHY2014IT023030

PATIENT
  Age: 87 Year
  Sex: Male

DRUGS (11)
  1. CARVEDILOL [Suspect]
     Dosage: 12.5 MG, QD
     Route: 048
     Dates: start: 20060101, end: 20140205
  2. MODURETIC [Suspect]
     Dosage: 1 DF, QD
     Route: 048
     Dates: start: 20131001, end: 20140205
  3. MODURETIC [Suspect]
     Route: 048
  4. NORVASC [Concomitant]
     Dosage: 5 MG, UNK
     Route: 048
  5. CARDIOASPIRIN [Concomitant]
     Dosage: 100 MG, UNK
  6. AVODART [Concomitant]
  7. LESCOL [Concomitant]
  8. TERAPROST [Concomitant]
  9. REPAGLINIDE [Concomitant]
     Dosage: 3 DF, UNK
     Route: 048
  10. METFORMIN [Concomitant]
     Dosage: 500 MG, UNK
     Route: 048
  11. ALLOPURINOL [Concomitant]

REACTIONS (2)
  - Hyperkalaemia [Recovered/Resolved]
  - Sinus bradycardia [Recovered/Resolved]
